FAERS Safety Report 4910590-8 (Version None)
Quarter: 2006Q1

REPORT INFORMATION
  Report Type: 
  Country: None (occurrence: None)
  Receive Date: 20060214
  Receipt Date: 20060203
  Transmission Date: 20060701
  Serious: Yes (Other)
  Sender: FDA-Public Use
  Company Number: US-JNJFOC-20060201174

PATIENT

DRUGS (6)
  1. REMICADE [Suspect]
     Route: 042
  2. REMICADE [Suspect]
     Dosage: TWO TREATMENTS GIVEN IN 2004 - OTHER DATE UNKNOWN
     Route: 042
  3. ASACOL [Concomitant]
  4. LOMOTIL [Concomitant]
  5. LOMOTIL [Concomitant]
  6. ROWASA [Concomitant]
     Route: 054

REACTIONS (1)
  - NASOPHARYNGEAL CANCER [None]
